FAERS Safety Report 5719425-7 (Version None)
Quarter: 2008Q2

REPORT INFORMATION
  Report Type: 
  Country: None (occurrence: None)
  Receive Date: 20080428
  Receipt Date: 20080418
  Transmission Date: 20081010
  Serious: Yes (Other)
  Sender: FDA-Public Use
  Company Number: PHHY2008AU05396

PATIENT
  Age: 45 Year
  Sex: Male

DRUGS (4)
  1. CLOZARIL [Suspect]
     Indication: SCHIZOPHRENIA
     Dosage: 150 MG, BID
     Dates: end: 20080122
  2. CITALOPRAM HYDROBROMIDE [Concomitant]
     Indication: DEPRESSION
     Dosage: 20 MG, UNK
  3. COLOXYL [Concomitant]
     Indication: CONSTIPATION
  4. HYOSCINE [Concomitant]
     Indication: SCHIZOPHRENIA
     Dosage: 0.3 MG, UNK
     Dates: end: 20080205

REACTIONS (11)
  - ALANINE AMINOTRANSFERASE INCREASED [None]
  - ASPARTATE AMINOTRANSFERASE INCREASED [None]
  - GAMMA-GLUTAMYLTRANSFERASE INCREASED [None]
  - HEPATITIS C [None]
  - LIVER FUNCTION TEST ABNORMAL [None]
  - NEUTROPENIA [None]
  - PLATELET COUNT ABNORMAL [None]
  - SPLENOMEGALY [None]
  - THROMBOCYTOPENIA [None]
  - ULTRASOUND ABDOMEN ABNORMAL [None]
  - WHITE BLOOD CELL DISORDER [None]
